FAERS Safety Report 8237389-1 (Version None)
Quarter: 2012Q1

REPORT INFORMATION
  Report Type: 
  Country: None (occurrence: None)
  Receive Date: 20120327
  Receipt Date: 20120320
  Transmission Date: 20120608
  Serious: Yes (Hospitalization, Other)
  Sender: FDA-Public Use
  Company Number: US-BAYER-2011-076165

PATIENT
  Age: 22 Year
  Sex: Female
  Weight: 72 kg

DRUGS (11)
  1. LISINOPRIL [Concomitant]
  2. LISINOPRIL AND HYDROCHLOROTHIAZIDE [Concomitant]
  3. WELLBUTRIN [Concomitant]
  4. TRIAMTEREN HCT [Concomitant]
  5. YAZ [Suspect]
     Indication: PREMENSTRUAL SYNDROME
     Dosage: UNK
     Dates: start: 20060901, end: 20100501
  6. XYZAL [Concomitant]
  7. EFFEXOR XR [Concomitant]
  8. SYNTHROID [Concomitant]
  9. YASMIN [Suspect]
     Indication: PREMENSTRUAL SYNDROME
     Dosage: UNK
     Dates: start: 20060401, end: 20060801
  10. ASCORBIC ACID [Concomitant]
  11. ZYRTEC [Concomitant]

REACTIONS (5)
  - CHOLECYSTITIS CHRONIC [None]
  - BILE DUCT STONE [None]
  - CHOLELITHIASIS [None]
  - PAIN [None]
  - CHOLECYSTITIS [None]
